FAERS Safety Report 24451951 (Version 1)
Quarter: 2024Q4

REPORT INFORMATION
  Report Type: Report from Study
  Country: US (occurrence: US)
  Receive Date: 20241017
  Receipt Date: 20241017
  Transmission Date: 20250115
  Serious: No
  Sender: DR REDDYS
  Company Number: US-DRL-USA-CLI/USA/24/0015018

PATIENT
  Age: 14 Year
  Sex: Female

DRUGS (2)
  1. JAVYGTOR [Suspect]
     Active Substance: SAPROPTERIN DIHYDROCHLORIDE
     Indication: Phenylketonuria
     Dosage: NINE 100 MG TABLETS BY MOUTH ONCE DAILY WITH MEAL, BOTTLE OF 120
     Route: 048
  2. SAPROPTERIN DIHYDROCHLORIDE [Concomitant]
     Active Substance: SAPROPTERIN DIHYDROCHLORIDE
     Indication: Product used for unknown indication
     Route: 065

REACTIONS (3)
  - Dysmenorrhoea [Unknown]
  - Abdominal discomfort [Unknown]
  - Product dose omission issue [Unknown]
